FAERS Safety Report 6348482-2 (Version None)
Quarter: 2009Q3

REPORT INFORMATION
  Report Type: 
  Country: None (occurrence: None)
  Receive Date: 20090911
  Receipt Date: 20070725
  Transmission Date: 20100115
  Serious: Yes (Other)
  Sender: FDA-Public Use
  Company Number: US-ASTRAZENECA-2007UW02038

PATIENT
  Age: 14228 Day
  Sex: Female

DRUGS (17)
  1. SEROQUEL [Suspect]
     Indication: BIPOLAR DISORDER
     Route: 048
     Dates: start: 20030605, end: 20031002
  2. SEROQUEL [Suspect]
     Indication: BIPOLAR I DISORDER
     Route: 048
     Dates: start: 20030605, end: 20031002
  3. SEROQUEL [Suspect]
     Route: 048
     Dates: start: 20031002, end: 20050305
  4. SEROQUEL [Suspect]
     Route: 048
     Dates: start: 20031002, end: 20050305
  5. SEROQUEL [Suspect]
     Dosage: 100 MG 3 AT MORNING AND 2 AT NIGHT
     Route: 048
     Dates: start: 20041021
  6. SEROQUEL [Suspect]
     Dosage: 100 MG 3 AT MORNING AND 2 AT NIGHT
     Route: 048
     Dates: start: 20041021
  7. ABILIFY [Concomitant]
     Dates: start: 20050301
  8. PAXIL [Concomitant]
     Dates: start: 19991115, end: 20040521
  9. PAXIL [Concomitant]
     Route: 048
     Dates: start: 20010723
  10. AVANDIA [Concomitant]
     Dates: start: 20040826
  11. XANAX [Concomitant]
     Dates: start: 19991027
  12. XANAX [Concomitant]
     Dosage: 1 MG TO 2 MG
     Route: 048
     Dates: start: 20010723
  13. METFORMIN HCL [Concomitant]
     Dates: start: 20050110
  14. LAMICTAL [Concomitant]
     Dates: start: 20040331
  15. AVANDAMET [Concomitant]
     Dates: start: 20050110
  16. PRILOSEC [Concomitant]
     Dates: start: 20050110
  17. INSULIN [Concomitant]

REACTIONS (3)
  - DIABETES MELLITUS [None]
  - HYPOAESTHESIA FACIAL [None]
  - MONONEURITIS [None]
